FAERS Safety Report 10160325 (Version 2)
Quarter: 2016Q1

REPORT INFORMATION
  Report Type: Spontaneous
  Country: US (occurrence: US)
  Receive Date: 20140508
  Receipt Date: 20160106
  Transmission Date: 20160525
  Serious: Yes (Other)
  Sender: FDA-Public Use
  Company Number: US-PFIZER INC-2014122986

PATIENT
  Age: 71 Year
  Sex: Female
  Weight: 60 kg

DRUGS (2)
  1. LIPITOR [Suspect]
     Active Substance: ATORVASTATIN CALCIUM
     Indication: BLOOD CHOLESTEROL INCREASED
     Dosage: 40 MG, DAILY
  2. GLUCOVANCE [Concomitant]
     Active Substance: GLYBURIDE\METFORMIN HYDROCHLORIDE
     Indication: DIABETES MELLITUS
     Dosage: [GLIBENCLAMIDE 5MG/ METFORMIN HYDROCHLORIDE 500 MG], 2X/DAY

REACTIONS (5)
  - Cough [Unknown]
  - Condition aggravated [Unknown]
  - Diabetes mellitus [Unknown]
  - Pneumonia [Unknown]
  - Nasopharyngitis [Unknown]

NARRATIVE: CASE EVENT DATE: 20140427
